FAERS Safety Report 25540776 (Version 2)
Quarter: 2025Q3

REPORT INFORMATION
  Report Type: Spontaneous
  Country: US (occurrence: US)
  Receive Date: 20250710
  Receipt Date: 20250715
  Transmission Date: 20251020
  Serious: Yes (Other)
  Sender: PFIZER
  Company Number: US-PFIZER INC-202500138761

PATIENT
  Age: 49 Year
  Sex: Female

DRUGS (2)
  1. INLYTA [Suspect]
     Active Substance: AXITINIB
     Indication: Renal cancer
     Dosage: 7 MG, 2X/DAY (TAKE 2 TABLET OF 1 MG WITH 1 TABLET OF 5 MG TWICE A DAY)
  2. INLYTA [Suspect]
     Active Substance: AXITINIB
     Dosage: 7 MG, 2X/DAY (TAKE 2 TABLET OF 1 MG WITH 1 TABLET OF 5 MG TWICE A DAY)

REACTIONS (2)
  - Renal cancer [Unknown]
  - Malignant neoplasm progression [Unknown]
